FAERS Safety Report 7197969-1 (Version None)
Quarter: 2010Q4

REPORT INFORMATION
  Report Type: 
  Country: None (occurrence: None)
  Receive Date: 20101213
  Receipt Date: 20101130
  Transmission Date: 20110411
  Serious: Yes (Hospitalization, Other)
  Sender: FDA-Public Use
  Company Number: 2006-03145

PATIENT
  Age: 58 Year
  Sex: Male
  Weight: 75 kg

DRUGS (13)
  1. VELCADE [Suspect]
     Indication: MULTIPLE MYELOMA
     Dosage: 1.00 MG/M2,; 2 MG, INTRAVENOUS
     Route: 042
     Dates: start: 20061120, end: 20061130
  2. ADRIAMYCIN PFS [Suspect]
     Indication: MULTIPLE MYELOMA
     Dosage: 17 MG, INTRAVENOUS
     Route: 042
     Dates: start: 20061120, end: 20061123
  3. ADRIAMYCIN PFS [Suspect]
     Indication: MULTIPLE MYELOMA
     Dosage: 17 MG, INTRAVENOUS
     Route: 042
     Dates: start: 20070102, end: 20070105
  4. DEXAMETHASONE TAB [Suspect]
     Indication: MULTIPLE MYELOMA
     Dosage: 40 MG, ORAL
     Route: 048
     Dates: start: 20061120, end: 20061209
  5. DEXAMETHASONE TAB [Suspect]
     Indication: MULTIPLE MYELOMA
     Dosage: 40 MG, ORAL
     Route: 048
     Dates: start: 20070102, end: 20070121
  6. ESOMEPRAZOLE (ESOMEPRAZOLE) [Concomitant]
  7. FENTANYL-100 [Concomitant]
  8. X-PREP (SENNA LEAF) [Concomitant]
  9. CLONDRONIC ACID (CLODRONIC ACID) [Concomitant]
  10. COTRIM [Concomitant]
  11. VALACYCLOVIR [Concomitant]
  12. LORAZEPAM [Concomitant]
  13. DIFLUCAN [Concomitant]

REACTIONS (6)
  - DISTURBANCE IN ATTENTION [None]
  - FALL [None]
  - MALAISE [None]
  - MUSCULAR WEAKNESS [None]
  - NEURALGIA [None]
  - PERIPHERAL SENSORY NEUROPATHY [None]
